FAERS Safety Report 19262650 (Version 1)
Quarter: 2021Q2

REPORT INFORMATION
  Report Type: Spontaneous
  Country: US (occurrence: US)
  Receive Date: 20210517
  Receipt Date: 20210517
  Transmission Date: 20210717
  Serious: Yes (Other)
  Sender: FDA-Public Use
  Company Number: US-SUN PHARMACEUTICAL INDUSTRIES LTD-2017US-138943

PATIENT
  Age: 76 Year
  Sex: Female

DRUGS (1)
  1. MEMANTINE. [Suspect]
     Active Substance: MEMANTINE
     Indication: DEMENTIA ALZHEIMER^S TYPE
     Dosage: XR
     Route: 065

REACTIONS (4)
  - Chorea [Recovering/Resolving]
  - Product administration error [Recovering/Resolving]
  - Overdose [Recovering/Resolving]
  - Dystonia [Recovering/Resolving]
